FAERS Safety Report 6924023-3 (Version None)
Quarter: 2010Q3

REPORT INFORMATION
  Report Type: 
  Country: None (occurrence: None)
  Receive Date: 20100813
  Receipt Date: 20100812
  Transmission Date: 20110219
  Serious: Yes (Other)
  Sender: FDA-Public Use
  Company Number: CA-WYE-G06533410

PATIENT
  Age: 16 Year
  Sex: Male

DRUGS (1)
  1. TORISEL [Suspect]
     Indication: CARCINOID TUMOUR
     Route: 042
     Dates: start: 20100804

REACTIONS (2)
  - CONFUSIONAL STATE [None]
  - LOSS OF CONSCIOUSNESS [None]
